FAERS Safety Report 7044361-6 (Version None)
Quarter: 2010Q4

REPORT INFORMATION
  Report Type: 
  Country: None (occurrence: None)
  Receive Date: 20101014
  Receipt Date: 20091111
  Transmission Date: 20110411
  Serious: No
  Sender: FDA-Public Use
  Company Number: US-PFIZER INC-2009291267

PATIENT
  Age: 10 Year

DRUGS (1)
  1. CLEOCIN [Suspect]
     Route: 048

REACTIONS (1)
  - RETCHING [None]
